FAERS Safety Report 5688559-8 (Version None)
Quarter: 2008Q1

REPORT INFORMATION
  Report Type: 
  Country: None (occurrence: None)
  Receive Date: 20080328
  Receipt Date: 20080328
  Transmission Date: 20080703
  Serious: Yes (Other)
  Sender: FDA-Public Use
  Company Number: None

PATIENT
  Sex: Female
  Weight: 81.6475 kg

DRUGS (1)
  1. AMBIEN [Suspect]
     Indication: INSOMNIA
     Dosage: 10 MG AT BEDTIME PO
     Route: 048
     Dates: start: 20061004, end: 20080327

REACTIONS (5)
  - ABNORMAL SLEEP-RELATED EVENT [None]
  - AGGRESSION [None]
  - AMNESIA [None]
  - IMPAIRED DRIVING ABILITY [None]
  - LIBIDO INCREASED [None]
